FAERS Safety Report 12199089 (Version 2)
Quarter: 2017Q3

REPORT INFORMATION
  Report Type: Spontaneous
  Country: US (occurrence: US)
  Receive Date: 20160322
  Receipt Date: 20170925
  Transmission Date: 20171127
  Serious: Yes (Other)
  Sender: FDA-Public Use
  Company Number: US-SUN PHARMACEUTICAL INDUSTRIES LTD-2016US-113461

PATIENT
  Age: 24 Month
  Sex: Female

DRUGS (1)
  1. ONDANSETRON [Suspect]
     Active Substance: ONDANSETRON
     Indication: PRODUCT USED FOR UNKNOWN INDICATION
     Dosage: 58 DF, SINGLE
     Route: 048

REACTIONS (10)
  - Nystagmus [Unknown]
  - Accidental overdose [Unknown]
  - Tremor [Unknown]
  - Vomiting [Unknown]
  - Respiratory failure [Unknown]
  - Electrocardiogram QT prolonged [Recovered/Resolved]
  - Myoclonus [Unknown]
  - Somnolence [Unknown]
  - Depressed level of consciousness [Not Recovered/Not Resolved]
  - Movement disorder [Unknown]
